FAERS Safety Report 6265066-5 (Version None)
Quarter: 2009Q3

REPORT INFORMATION
  Report Type: 
  Country: None (occurrence: None)
  Receive Date: 20090713
  Receipt Date: 20090630
  Transmission Date: 20100115
  Serious: Yes (Other)
  Sender: FDA-Public Use
  Company Number: GB-PFIZER INC-2009233896

PATIENT
  Age: 44 Year

DRUGS (1)
  1. CHAMPIX [Suspect]
     Indication: SMOKING CESSATION THERAPY
     Dosage: 1 MG, UNK
     Route: 048
     Dates: start: 20080521, end: 20090202

REACTIONS (5)
  - ANXIETY [None]
  - CONFUSIONAL STATE [None]
  - HEADACHE [None]
  - INTENTIONAL SELF-INJURY [None]
  - MEDICATION ERROR [None]
